FAERS Safety Report 16082869 (Version 2)
Quarter: 2019Q1

REPORT INFORMATION
  Report Type: Spontaneous
  Country: NL (occurrence: NL)
  Receive Date: 20190318
  Receipt Date: 20190320
  Transmission Date: 20190418
  Serious: Yes (Other)
  Sender: FDA-Public Use
  Company Number: NL-ROCHE-2279793

PATIENT
  Age: 29 Year
  Sex: Female

DRUGS (2)
  1. OCREVUS [Suspect]
     Active Substance: OCRELIZUMAB
     Route: 042
     Dates: start: 20181116
  2. OCREVUS [Suspect]
     Active Substance: OCRELIZUMAB
     Indication: RELAPSING-REMITTING MULTIPLE SCLEROSIS
     Dosage: 11/MAY/2018 AND 25/MAY/2018 RECEIVD SAME SUBSEQUENT DOSE
     Route: 042
     Dates: start: 201805

REACTIONS (6)
  - Mood swings [Unknown]
  - Menstruation irregular [Unknown]
  - Fatigue [Unknown]
  - Headache [Not Recovered/Not Resolved]
  - Vulvovaginal candidiasis [Unknown]
  - Depressive symptom [Unknown]
